FAERS Safety Report 13926448 (Version 1)
Quarter: 2017Q3

REPORT INFORMATION
  Report Type: Spontaneous
  Country: US (occurrence: None)
  Receive Date: 20170831
  Receipt Date: 20170831
  Transmission Date: 20171127
  Serious: No
  Sender: FDA-Public Use
  Company Number: None

PATIENT
  Sex: Female

DRUGS (6)
  1. MILK THISTLE [Concomitant]
     Active Substance: MILK THISTLE
  2. DHEA [Concomitant]
     Active Substance: PRASTERONE
  3. TURMERIC [Concomitant]
     Active Substance: HERBALS\TURMERIC
  4. OCALIVA [Suspect]
     Active Substance: OBETICHOLIC ACID
     Indication: BILIARY CIRRHOSIS PRIMARY
     Route: 048
     Dates: start: 20170727
  5. FISH OIL [Concomitant]
     Active Substance: FISH OIL
  6. VITAMIN D3 [Concomitant]
     Active Substance: CHOLECALCIFEROL

REACTIONS (1)
  - Rash generalised [None]

NARRATIVE: CASE EVENT DATE: 2017
